FAERS Safety Report 22619613 (Version 2)
Quarter: 2025Q1

REPORT INFORMATION
  Report Type: Spontaneous
  Country: US (occurrence: US)
  Receive Date: 20230620
  Receipt Date: 20250124
  Transmission Date: 20250408
  Serious: No
  Sender: SANOFI AVENTIS
  Company Number: US-SA-SAC20230619000565

PATIENT
  Age: 58 Year
  Sex: Male
  Weight: 129 kg

DRUGS (4)
  1. DUPIXENT [Suspect]
     Active Substance: DUPILUMAB
     Indication: Chronic rhinosinusitis with nasal polyps
     Dosage: 300 MG, QOW
     Route: 058
     Dates: start: 20230427, end: 20241219
  2. LORATADINE [Concomitant]
     Active Substance: LORATADINE
  3. FLUTICASONE PROPIONATE [Concomitant]
     Active Substance: FLUTICASONE PROPIONATE
  4. METOPROLOL SUCCINATE [Concomitant]
     Active Substance: METOPROLOL SUCCINATE

REACTIONS (10)
  - Illness [Unknown]
  - Cough [Unknown]
  - Sinus congestion [Unknown]
  - Ear infection [Unknown]
  - Secretion discharge [Unknown]
  - Viral infection [Unknown]
  - Oropharyngeal pain [Unknown]
  - Headache [Unknown]
  - Sinusitis [Recovered/Resolved]
  - Sinus operation [Unknown]

NARRATIVE: CASE EVENT DATE: 20230430
